FAERS Safety Report 4886032-8 (Version None)
Quarter: 2006Q2

REPORT INFORMATION
  Report Type: 
  Country: None (occurrence: None)
  Receive Date: 20060117
  Receipt Date: 20060105
  Transmission Date: 20061013
  Serious: Yes (Hospitalization)
  Sender: FDA-Public Use
  Company Number: 2006-01-0274

PATIENT
  Age: 49 Year
  Sex: Female
  Weight: 60 kg

DRUGS (6)
  1. AERIUS  (DESLORATADINE) [Suspect]
     Indication: RHINITIS ALLERGIC
     Dosage: 5 MG QD ORAL
     Route: 048
     Dates: start: 20050201, end: 20051020
  2. SINGULAIR [Suspect]
     Indication: ASTHMA
     Dosage: ORAL
     Route: 048
     Dates: start: 20050201, end: 20051020
  3. SYMBICORT MDI [Suspect]
     Indication: ASTHMA
     Dosage: 40 UG BID INHALATION
     Dates: start: 20050201, end: 20051020
  4. XOLAIR [Suspect]
     Indication: ASTHMA
     Dosage: 200 MG QM SUBCUTANEOUS
     Route: 058
     Dates: start: 20050601, end: 20050905
  5. BRICANYL [Suspect]
     Indication: ASTHMA
     Dosage: 5 MG BID
     Dates: start: 20050101, end: 20051020
  6. EUPHYLLIN [Suspect]
     Indication: ASTHMA
     Dosage: 300 MG QD ORAL
     Route: 048
     Dates: start: 20050201, end: 20051020

REACTIONS (6)
  - ARTERIAL THROMBOSIS [None]
  - DEEP VEIN THROMBOSIS [None]
  - INSOMNIA [None]
  - OEDEMA PERIPHERAL [None]
  - PAIN IN EXTREMITY [None]
  - PERIPHERAL ISCHAEMIA [None]
